FAERS Safety Report 4960409-4 (Version None)
Quarter: 2006Q1

REPORT INFORMATION
  Report Type: 
  Country: None (occurrence: None)
  Receive Date: 20060329
  Receipt Date: 20060322
  Transmission Date: 20060701
  Serious: Yes (Other)
  Sender: FDA-Public Use
  Company Number: 2006-03-1424

PATIENT
  Age: 48 Year
  Sex: Male

DRUGS (4)
  1. NASONEX [Suspect]
     Dosage: NASAL SPRAY
     Route: 045
     Dates: start: 20060301
  2. BETA-BLOCKER                  (NOS) TABLETS [Concomitant]
  3. FLIXOTIDE             (FLUTICASONE PRIOPIONATE) [Concomitant]
  4. BISOPROLOL [Concomitant]

REACTIONS (1)
  - LOSS OF CONSCIOUSNESS [None]
